FAERS Safety Report 6270694-7 (Version None)
Quarter: 2009Q3

REPORT INFORMATION
  Report Type: 
  Country: None (occurrence: None)
  Receive Date: 20090716
  Receipt Date: 20090713
  Transmission Date: 20100115
  Serious: Yes (Other)
  Sender: FDA-Public Use
  Company Number: NL-WYE-G04037709

PATIENT
  Age: 83 Year
  Sex: Female

DRUGS (6)
  1. EFFEXOR XR [Suspect]
     Dates: start: 20090616, end: 20090619
  2. DILTIAZEM HCL [Concomitant]
  3. SIMVASTATIN [Concomitant]
  4. MIRTAZAPINE [Interacting]
     Dates: start: 20041216
  5. CAPTOPRIL [Concomitant]
  6. CAPTOPRIL AND HYDROCHLOROTHIAZIDE [Concomitant]

REACTIONS (5)
  - DRUG INTERACTION [None]
  - HYPERHIDROSIS [None]
  - HYPERTHERMIA [None]
  - NAUSEA [None]
  - SEROTONIN SYNDROME [None]
